FAERS Safety Report 17916625 (Version 1)
Quarter: 2020Q2

REPORT INFORMATION
  Report Type: Spontaneous
  Country: US (occurrence: US)
  Receive Date: 20200619
  Receipt Date: 20200619
  Transmission Date: 20200714
  Serious: No
  Sender: FDA-Public Use
  Company Number: None

PATIENT
  Age: 64 Year
  Sex: Male
  Weight: 132.75 kg

DRUGS (3)
  1. IRON PLL OTC [Concomitant]
  2. DAILY MULTI VITAMIN [Concomitant]
  3. VYZULTA [Suspect]
     Active Substance: LATANOPROSTENE BUNOD
     Indication: OCULAR HYPERTENSION
     Dosage: ?          QUANTITY:1 DROP(S);?
     Route: 047

REACTIONS (3)
  - Rash macular [None]
  - Pustule [None]
  - Rash erythematous [None]

NARRATIVE: CASE EVENT DATE: 20200401
